FAERS Safety Report 9878446 (Version 2)
Quarter: 2014Q1

REPORT INFORMATION
  Report Type: Spontaneous
  Country: US (occurrence: US)
  Receive Date: 20140206
  Receipt Date: 20140206
  Transmission Date: 20141002
  Serious: No
  Sender: FDA-Public Use
  Company Number: US-ALLERGAN-1311680US

PATIENT
  Age: 53 Year
  Sex: Female

DRUGS (9)
  1. BOTOX [Suspect]
     Indication: MIGRAINE
     Dosage: 200 UNITS, SINGLE
     Route: 030
     Dates: start: 20130613, end: 20130613
  2. BOTOX [Suspect]
     Dosage: UNK
  3. ZOFRAN                             /00955301/ [Concomitant]
     Indication: NAUSEA
  4. LINZESS [Concomitant]
     Indication: IRRITABLE BOWEL SYNDROME
     Dosage: UNK
  5. BIOIDENTICAL HORMONES [Concomitant]
     Indication: HORMONE REPLACEMENT THERAPY
  6. BYSTOLIC [Concomitant]
     Indication: MIGRAINE
     Dosage: 5 MG, QD
     Route: 048
  7. KLONOPIN [Concomitant]
     Indication: MIGRAINE
     Dosage: 3 MG, SINGLE
     Route: 048
  8. DURAGESIC                          /00070401/ [Concomitant]
     Indication: MIGRAINE
     Dosage: UNK
     Route: 062
  9. PERCOCET                           /00446701/ [Concomitant]
     Indication: MIGRAINE
     Dosage: UNK UNK, PRN
     Route: 048

REACTIONS (3)
  - Off label use [Unknown]
  - Pruritus [Recovered/Resolved]
  - Drug ineffective [Unknown]
